FAERS Safety Report 8881017 (Version 2)
Quarter: 2014Q2

REPORT INFORMATION
  Report Type: Spontaneous
  Country: US (occurrence: US)
  Receive Date: 20121101
  Receipt Date: 20131018
  Transmission Date: 20141212
  Serious: Yes (Other)
  Sender: FDA-Public Use
  Company Number: US-PFIZER INC-2012267397

PATIENT
  Age: 50 Year
  Sex: Female
  Weight: 56.69 kg

DRUGS (3)
  1. PREMPRO [Suspect]
     Indication: MENOPAUSE
     Dosage: 0.3/1.5 MG, 1X/DAY
     Route: 048
  2. PREMPRO [Suspect]
     Indication: BLOOD OESTROGEN ABNORMAL
  3. ZOLOFT [Concomitant]
     Dosage: UNK

REACTIONS (2)
  - Adnexa uteri pain [Not Recovered/Not Resolved]
  - Breast tenderness [Not Recovered/Not Resolved]
